FAERS Safety Report 10418833 (Version 1)
Quarter: 2014Q2

REPORT INFORMATION
  Report Type: Spontaneous
  Country: US (occurrence: None)
  Receive Date: 20140617
  Receipt Date: 20140617
  Transmission Date: 20141212
  Serious: Yes (Other)
  Sender: FDA-Public Use
  Company Number: 1375175

PATIENT
  Age: 14 Year
  Sex: Female
  Weight: 46.1 kg

DRUGS (6)
  1. ACTERMA 5% TWO INFUSION DOSES [Suspect]
     Indication: TAKAYASU^S ARTERITIS
     Dosage: 3-4 MONTHS (360 MG, 1 IN 14 D), INTRAVENOUS (NOT OTHERWISE SPECIFIED)
  2. CYCLOPHOSPHAMIDE [Concomitant]
  3. PREDNISONE [Concomitant]
  4. AMBRISENTAN [Concomitant]
  5. SILDENAFIL (SILDENAFIL CITRATE, SILDENAFIL) [Concomitant]
  6. LISINOPRIL [Concomitant]

REACTIONS (6)
  - Upper respiratory tract infection [None]
  - Nausea [None]
  - Diarrhoea [None]
  - Leukopenia [None]
  - Platelet count decreased [None]
  - Abdominal pain [None]
